FAERS Safety Report 5714883-6 (Version None)
Quarter: 2008Q2

REPORT INFORMATION
  Report Type: 
  Country: None (occurrence: None)
  Receive Date: 20080423
  Receipt Date: 20070911
  Transmission Date: 20081010
  Serious: No
  Sender: FDA-Public Use
  Company Number: US-BAYER-US-2007-034151

PATIENT
  Age: 57 Year
  Sex: Female
  Weight: 98 kg

DRUGS (8)
  1. LEUKINE [Suspect]
     Route: 058
     Dates: start: 20070619, end: 20070619
  2. ADRIAMYCIN PFS [Suspect]
     Indication: BREAST CANCER
     Dates: start: 20070618
  3. CYTOXAN [Suspect]
     Indication: BREAST CANCER
     Dates: start: 20070618
  4. ATIVAN [Concomitant]
  5. COMPAZINE [Concomitant]
  6. EMEND [Concomitant]
  7. DECADRON /CAN/ [Concomitant]
  8. KYTRIL [Concomitant]

REACTIONS (5)
  - ABDOMINAL PAIN [None]
  - FLUSHING [None]
  - HYPERHIDROSIS [None]
  - MALAISE [None]
  - PRESYNCOPE [None]
